FAERS Safety Report 8971171 (Version 1)
Quarter: 2012Q4

REPORT INFORMATION
  Report Type: 
  Country: US (occurrence: US)
  Receive Date: 20121218
  Receipt Date: 20121218
  Transmission Date: 20130627
  Serious: No
  Sender: FDA-Public Use
  Company Number: US-PFIZER INC-2012306973

PATIENT
  Age: 69 Year
  Sex: Female

DRUGS (3)
  1. INLYTA [Suspect]
     Indication: KIDNEY CANCER
     Dosage: 7 mg, 2x/day
     Route: 048
     Dates: start: 20120626
  2. INLYTA [Suspect]
     Dosage: 1 mg, UNK
     Route: 048
  3. INLYTA [Suspect]
     Dosage: 5 mg, UNK
     Route: 048

REACTIONS (3)
  - Diarrhoea [Unknown]
  - Dehydration [Unknown]
  - Hypertension [Unknown]
